FAERS Safety Report 20046031 (Version 1)
Quarter: 2021Q4

REPORT INFORMATION
  Report Type: Spontaneous
  Country: US (occurrence: None)
  Receive Date: 20211108
  Receipt Date: 20211108
  Transmission Date: 20220303
  Serious: Yes (Death, Hospitalization)
  Sender: FDA-Public Use
  Company Number: None

PATIENT
  Age: 68 Year
  Sex: Male
  Weight: 154.6 kg

DRUGS (8)
  1. CASIRIVIMAB [Suspect]
     Active Substance: CASIRIVIMAB
     Indication: COVID-19
     Dosage: FREQUENCY : ONCE;?
     Route: 042
     Dates: start: 20211019, end: 20211019
  2. IMDEVIMAB [Suspect]
     Active Substance: IMDEVIMAB
     Indication: COVID-19
     Dosage: FREQUENCY : ONCE;?
     Route: 042
     Dates: start: 20211019, end: 20211019
  3. sotalol 80 mg daily [Concomitant]
  4. warfarin 7.5 mg daily [Concomitant]
  5. cetirizine 10 mg daily [Concomitant]
  6. omeprazole 40 mg daily [Concomitant]
  7. pregabalin 200 mg daily [Concomitant]
  8. tramadol 50 mg Q6h prn pain [Concomitant]

REACTIONS (7)
  - Pulseless electrical activity [None]
  - Product packaging confusion [None]
  - Incorrect dosage administered [None]
  - Hypoxia [None]
  - Condition aggravated [None]
  - Cardiac arrest [None]
  - Positive airway pressure therapy [None]

NARRATIVE: CASE EVENT DATE: 20211019
